FAERS Safety Report 10540502 (Version 3)
Quarter: 2015Q1

REPORT INFORMATION
  Report Type: Spontaneous
  Country: IT (occurrence: IT)
  Receive Date: 20141024
  Receipt Date: 20150209
  Transmission Date: 20150720
  Serious: Yes (Hospitalization)
  Sender: FDA-Public Use
  Company Number: IT-PFIZER INC-2014291400

PATIENT
  Age: 49 Year
  Sex: Female

DRUGS (4)
  1. SERTRALINE HCL [Suspect]
     Active Substance: SERTRALINE HYDROCHLORIDE
     Indication: PERSONALITY DISORDER
     Dosage: 30 DF, SINGLE
     Route: 048
     Dates: start: 20140423, end: 20140423
  2. SERTRALINE HCL [Suspect]
     Active Substance: SERTRALINE HYDROCHLORIDE
     Indication: DEPRESSION
     Dosage: 100 MG, DAILY
     Route: 048
     Dates: start: 20140402, end: 20140422
  3. FLURAZEPAM HYDROCHLORIDE. [Suspect]
     Active Substance: FLURAZEPAM HYDROCHLORIDE
     Indication: DEPRESSION
     Dosage: 30 MG, DAILY
     Route: 048
     Dates: start: 20140402, end: 20140422
  4. FLURAZEPAM HYDROCHLORIDE. [Suspect]
     Active Substance: FLURAZEPAM HYDROCHLORIDE
     Indication: PERSONALITY DISORDER
     Dosage: 18 DF, SINGLE
     Route: 048
     Dates: start: 20140423, end: 20140423

REACTIONS (2)
  - Drug abuse [Unknown]
  - Sopor [Unknown]

NARRATIVE: CASE EVENT DATE: 20140423
